FAERS Safety Report 9978603 (Version 1)
Quarter: 2014Q1

REPORT INFORMATION
  Report Type: Report from Study
  Country: US (occurrence: US)
  Receive Date: 20140306
  Receipt Date: 20140306
  Transmission Date: 20141002
  Serious: Yes (Other)
  Sender: FDA-Public Use
  Company Number: US-ABBVIE-13P-163-1171561-00

PATIENT
  Age: 22 Year
  Sex: Female

DRUGS (3)
  1. HUMIRA [Suspect]
     Indication: COLITIS ULCERATIVE
     Dates: end: 2010
  2. HUMIRA [Suspect]
  3. PREVIFEM [Concomitant]
     Indication: CONTRACEPTION

REACTIONS (12)
  - Tonsillectomy [Not Recovered/Not Resolved]
  - Depression [Unknown]
  - Anxiety [Unknown]
  - Colitis ulcerative [Unknown]
  - Psoriasis [Unknown]
  - Nausea [Not Recovered/Not Resolved]
  - Vomiting [Unknown]
  - Pallor [Not Recovered/Not Resolved]
  - Skin discolouration [Not Recovered/Not Resolved]
  - Chills [Unknown]
  - Abdominal pain [Unknown]
  - Vomiting [Unknown]
